FAERS Safety Report 6219491-9 (Version None)
Quarter: 2009Q2

REPORT INFORMATION
  Report Type: 
  Country: None (occurrence: None)
  Receive Date: 20090609
  Receipt Date: 20090604
  Transmission Date: 20091009
  Serious: Yes (Death, Hospitalization, Other)
  Sender: FDA-Public Use
  Company Number: PHEH2009US05433

PATIENT
  Sex: Female
  Weight: 35 kg

DRUGS (11)
  1. EXJADE [Suspect]
     Indication: THALASSAEMIA BETA
     Dosage: 875 MG, QD
     Dates: start: 20060419, end: 20090313
  2. DIGOXIN [Concomitant]
     Dosage: 0.125 MG, BID
     Route: 048
     Dates: start: 20071001
  3. PENICILLIN V POTASSIUM [Concomitant]
     Dosage: 250 MG, BID
     Route: 048
     Dates: start: 20021001
  4. TUMS [Concomitant]
     Dosage: 500 MG, 2 TABLETS DAILY
     Route: 048
  5. COPPER [Concomitant]
     Dosage: 1 TABLET DAILY
     Route: 048
  6. ZINC SULFATE [Concomitant]
     Dosage: 1 CAPSULE DAILY AM
     Route: 048
  7. INSULIN LISPRO [Concomitant]
     Dosage: 100 UNIT/ML AS INSTRUCTED
     Route: 058
     Dates: start: 20081121
  8. INSULIN GLARGINE [Concomitant]
     Dosage: 100 UNIT/ML AS INSTRUCTED
     Route: 058
     Dates: start: 20081121
  9. MULTI-VITAMINS [Concomitant]
     Dosage: 1 TABLET DAILY
     Route: 048
  10. ACETAMINOPHEN [Concomitant]
     Dosage: 320MG EVERY 4 HOURS AS NEEDED FOR PAIN
     Route: 048
  11. IBUPROFEN [Concomitant]
     Dosage: 250MG EVERY 6 HOURS AS NEEDED
     Route: 048

REACTIONS (13)
  - ABDOMINAL PAIN [None]
  - ALANINE AMINOTRANSFERASE INCREASED [None]
  - ASPARTATE AMINOTRANSFERASE INCREASED [None]
  - BLOOD UREA INCREASED [None]
  - CARDIAC DISORDER [None]
  - CARDIAC FAILURE [None]
  - CARDIOMYOPATHY [None]
  - DISEASE PROGRESSION [None]
  - HEPATIC ENZYME INCREASED [None]
  - PAIN [None]
  - SERUM FERRITIN INCREASED [None]
  - SHOCK [None]
  - TREATMENT NONCOMPLIANCE [None]
